FAERS Safety Report 8924538 (Version 1)
Quarter: 2012Q4

REPORT INFORMATION
  Report Type: Report from Study
  Country: ES (occurrence: ES)
  Receive Date: 20121126
  Receipt Date: 20121126
  Transmission Date: 20130627
  Serious: Yes (Other)
  Sender: FDA-Public Use
  Company Number: ES-ROCHE-672282

PATIENT
  Age: 33 Year
  Sex: Female
  Weight: 67 kg

DRUGS (6)
  1. EPIRUBICIN [Suspect]
     Indication: BREAST CANCER
     Dosage: EPIRUBICINA, LAST DOSE PRIOR TO SAE: 13 OCTOBER 2009, PERMANENTLY DISCONTINUED.
     Route: 042
     Dates: start: 20091013, end: 20091103
  2. FLUOROURACIL [Suspect]
     Indication: BREAST CANCER
     Dosage: DRUG: 5-FU, LAST DOSE PRIOR TO SAE: 13 OCT 2009, PERMANENTLY DISCONTINUED.
     Route: 042
     Dates: start: 20091013, end: 20091103
  3. CYCLOPHOSPHAMIDE [Suspect]
     Indication: BREAST CANCER
     Dosage: LAST DOSE PRIOR TO SAE: 13 OCT 2009, PERMANENTLY DISCONTINUED.
     Route: 042
     Dates: start: 20091013, end: 20091103
  4. DOCETAXEL [Suspect]
     Indication: BREAST CANCER
     Dosage: LAST DOSE PRIOR TO SAE ON 14 AUGUST 2009
     Route: 042
  5. PERTUZUMAB [Suspect]
     Indication: BREAST CANCER
     Dosage: LAST DOSE PRIOR TO SAE ON 14 AUGUST 2009.
     Route: 042
     Dates: start: 20090519
  6. TRASTUZUMAB [Suspect]
     Indication: BREAST CANCER
     Dosage: LOADING DOSE AS PER PROTOCOL.
     Route: 042
     Dates: start: 20090519

REACTIONS (1)
  - Left ventricular dysfunction [Recovered/Resolved]
